FAERS Safety Report 9060893 (Version 1)
Quarter: 2013Q1

REPORT INFORMATION
  Report Type: Other
  Country: IL (occurrence: IL)
  Receive Date: 20130212
  Receipt Date: 20130212
  Transmission Date: 20140127
  Serious: Yes (Death)
  Sender: FDA-Public Use
  Company Number: IL-BRISTOL-MYERS SQUIBB COMPANY-17375130

PATIENT
  Age: 33 Year
  Sex: Female

DRUGS (5)
  1. MITOTANE [Suspect]
     Indication: ADRENOCORTICAL CARCINOMA
  2. ETOPOSIDE [Concomitant]
     Indication: CHEMOTHERAPY
  3. DOXORUBICIN [Concomitant]
     Indication: CHEMOTHERAPY
  4. CISPLATIN [Concomitant]
     Indication: CHEMOTHERAPY
  5. HYDROCORTISONE [Concomitant]

REACTIONS (4)
  - Pulmonary embolism [Fatal]
  - Abortion induced [Unknown]
  - Drug intolerance [Unknown]
  - Pregnancy [Recovered/Resolved]
